FAERS Safety Report 15750655 (Version 3)
Quarter: 2019Q1

REPORT INFORMATION
  Report Type: Spontaneous
  Country: US (occurrence: US)
  Receive Date: 20181221
  Receipt Date: 20190130
  Transmission Date: 20190417
  Serious: Yes (Other)
  Sender: FDA-Public Use
  Company Number: US-BAUSCH-BL-2018-035419

PATIENT
  Age: 47 Year
  Sex: Female

DRUGS (3)
  1. VITAMIN B [Concomitant]
     Active Substance: VITAMIN B
     Indication: PRODUCT USED FOR UNKNOWN INDICATION
  2. FENOFIBRATE. [Suspect]
     Active Substance: FENOFIBRATE
     Indication: BLOOD CHOLESTEROL ABNORMAL
     Route: 065
     Dates: end: 20140513
  3. MOVIPREP [Suspect]
     Active Substance: ASCORBIC ACID\POLYETHYLENE GLYCOL 3350\POTASSIUM CHLORIDE\SODIUM ASCORBATE\SODIUM CHLORIDE\SODIUM SULFATE
     Indication: BOWEL PREPARATION
     Route: 048
     Dates: start: 20131230, end: 2013

REACTIONS (16)
  - Hypoaesthesia [Recovered/Resolved]
  - Angina pectoris [Recovering/Resolving]
  - Heart rate increased [Not Recovered/Not Resolved]
  - Muscular weakness [Recovered/Resolved]
  - Angiopathy [Recovered/Resolved]
  - Vitreous floaters [Recovering/Resolving]
  - Metabolic syndrome [Recovering/Resolving]
  - Tinnitus [Recovering/Resolving]
  - Headache [Recovering/Resolving]
  - Feeling abnormal [Recovered/Resolved]
  - Palpitations [Recovering/Resolving]
  - Hypertension [Not Recovered/Not Resolved]
  - Tooth loss [Recovering/Resolving]
  - Breast cyst [Recovering/Resolving]
  - Spinal retrolisthesis [Recovering/Resolving]
  - Facet joint syndrome [Recovering/Resolving]

NARRATIVE: CASE EVENT DATE: 20140113
